FAERS Safety Report 7721473-2 (Version None)
Quarter: 2011Q3

REPORT INFORMATION
  Report Type: 
  Country: None (occurrence: None)
  Receive Date: 20110831
  Receipt Date: 20110810
  Transmission Date: 20111222
  Serious: Yes (Other)
  Sender: FDA-Public Use
  Company Number: IE-JNJFOC-20110813364

PATIENT
  Age: 44 Year
  Sex: Female

DRUGS (1)
  1. REMICADE [Suspect]
     Indication: CROHN'S DISEASE
     Route: 042
     Dates: start: 20110721

REACTIONS (5)
  - INFUSION RELATED REACTION [None]
  - TACHYCARDIA [None]
  - BRONCHOSPASM [None]
  - NAUSEA [None]
  - FLUSHING [None]
